FAERS Safety Report 14952635 (Version 2)
Quarter: 2018Q3

REPORT INFORMATION
  Report Type: Spontaneous
  Country: US (occurrence: US)
  Receive Date: 20180530
  Receipt Date: 20180710
  Transmission Date: 20181010
  Serious: No
  Sender: FDA-Public Use
  Company Number: US-PFIZER INC-2018220876

PATIENT
  Age: 61 Year
  Sex: Male

DRUGS (3)
  1. EUCRISA [Suspect]
     Active Substance: CRISABOROLE
     Indication: ECZEMA
     Dosage: UNK
  2. EUCRISA [Suspect]
     Active Substance: CRISABOROLE
     Indication: DERMATITIS ATOPIC
     Dosage: UNK, DAILY
     Route: 061
     Dates: start: 20180313
  3. HALOBETASOL [Concomitant]
     Active Substance: HALOBETASOL PROPIONATE
     Indication: DERMATITIS ATOPIC
     Dosage: 0.051 G, 2X/DAY (0.051 CRM BID)
     Route: 061
     Dates: start: 20180313

REACTIONS (1)
  - Drug effect incomplete [Unknown]
